FAERS Safety Report 9371428 (Version 1)
Quarter: 2013Q2

REPORT INFORMATION
  Report Type: Spontaneous
  Country: DE (occurrence: DE)
  Receive Date: 20130627
  Receipt Date: 20130627
  Transmission Date: 20140414
  Serious: Yes (Other)
  Sender: FDA-Public Use
  Company Number: DE-JNJFOC-20130616407

PATIENT
  Sex: 0

DRUGS (17)
  1. DOXORUBICIN [Suspect]
     Indication: T-CELL LYMPHOMA
     Dosage: ON DAY 3
     Route: 042
  2. DOXORUBICIN [Suspect]
     Indication: T-CELL LYMPHOMA
     Dosage: ON DAY 4 OF CYCLE 1
     Route: 042
  3. ALEMTUZUMAB [Suspect]
     Indication: T-CELL LYMPHOMA
     Dosage: 10 MG ON DAY 1 AND 30 MG ON DAYS 2 AND 3
     Route: 042
  4. ALEMTUZUMAB [Suspect]
     Indication: T-CELL LYMPHOMA
     Dosage: 3 MG ON DAY 1, 10 MG ON DAY 2, AND 30 MG ON DAYS 3 AND 4, OVER A PERIOD OF 3 HOUR
     Route: 042
  5. ALEMTUZUMAB [Suspect]
     Indication: T-CELL LYMPHOMA
     Dosage: 3 MG ON DAY 1, 10 MG ON DAY 2, AND 30 MG ON DAYS 3 AND 4, OVER A PERIOD OF 3 HOUR
     Route: 058
  6. ALEMTUZUMAB [Suspect]
     Indication: T-CELL LYMPHOMA
     Dosage: 10 MG ON DAY 1 AND 30 MG ON DAYS 2 AND 3
     Route: 058
  7. FLUDARABINE [Suspect]
     Indication: T-CELL LYMPHOMA
     Dosage: ON DAYS 1-3
     Route: 065
  8. FLUDARABINE [Suspect]
     Indication: T-CELL LYMPHOMA
     Dosage: ON DAYS 2, 3, AND 4 OF CYCLE 1
     Route: 065
  9. CYCLOPHOSPHAMIDE [Suspect]
     Indication: T-CELL LYMPHOMA
     Dosage: ON DAY 2
     Route: 065
  10. CYCLOPHOSPHAMIDE [Suspect]
     Indication: T-CELL LYMPHOMA
     Dosage: ON DAY 3
     Route: 065
  11. CLEMASTINE [Concomitant]
     Indication: PREMEDICATION
     Route: 042
  12. ACETAMINOPHEN [Concomitant]
     Indication: PREMEDICATION
     Route: 048
  13. PREDNISONE [Concomitant]
     Indication: PREMEDICATION
     Dosage: ON DAYS 2 AND 3
     Route: 042
  14. PREDNISONE [Concomitant]
     Indication: PREMEDICATION
     Dosage: ON DAY 1 OF EACH CYCLE
     Route: 042
  15. SEROTONIN ANTAGONISTS [Concomitant]
     Indication: PREMEDICATION
     Dosage: ON DAYS 2 AND 3
     Route: 065
  16. TRIMETHOPRIM/SULFAMETHOXAZOLE [Concomitant]
     Indication: PROPHYLAXIS
     Dosage: ON DAYS 2 AND 3
     Route: 065
  17. FAMCICLOVIR [Concomitant]
     Indication: PROPHYLAXIS
     Dosage: ON DAYS 2 AND 3
     Route: 065

REACTIONS (1)
  - Cytomegalovirus enteritis [Unknown]
